FAERS Safety Report 5073910-2 (Version None)
Quarter: 2006Q3

REPORT INFORMATION
  Report Type: 
  Country: None (occurrence: None)
  Receive Date: 20060808
  Receipt Date: 20060728
  Transmission Date: 20061208
  Serious: Yes (Hospitalization)
  Sender: FDA-Public Use
  Company Number: PHRM2006FR02206

PATIENT
  Age: 54 Year
  Sex: Male
  Weight: 120 kg

DRUGS (7)
  1. AREDIA [Suspect]
     Indication: COMPLEX REGIONAL PAIN SYNDROME
     Dosage: 30 MG, QD
     Route: 042
     Dates: start: 20051122, end: 20051124
  2. DIAMICRON [Concomitant]
     Indication: DIABETES MELLITUS NON-INSULIN-DEPENDENT
  3. GLUCOPHAGE [Concomitant]
     Indication: DIABETES MELLITUS NON-INSULIN-DEPENDENT
  4. TRAMADOL HCL [Concomitant]
     Dosage: 300 MG DAILY
     Route: 048
  5. IXPRIM [Concomitant]
     Dosage: 2 DF, BID
     Route: 048
  6. RIVOTRIL [Concomitant]
     Dosage: 5 DRP, QD
     Route: 048
  7. NEURONTIN [Concomitant]
     Dosage: 400 MG, TID

REACTIONS (2)
  - HYPERTENSION [None]
  - HYPERTENSIVE CRISIS [None]
